FAERS Safety Report 21027382 (Version 1)
Quarter: 2022Q2

REPORT INFORMATION
  Report Type: Spontaneous
  Country: GB (occurrence: GB)
  Receive Date: 20220630
  Receipt Date: 20220630
  Transmission Date: 20220721
  Serious: Yes (Other)
  Sender: FDA-Public Use
  Company Number: None

PATIENT
  Age: 73 Year
  Sex: Female
  Weight: 58 kg

DRUGS (16)
  1. TRAMADOL [Suspect]
     Active Substance: TRAMADOL
     Indication: Product used for unknown indication
     Dosage: 500 MILLIGRAM
     Route: 048
     Dates: start: 20220622
  2. AMITRIPTYLINE HYDROCHLORIDE [Concomitant]
     Active Substance: AMITRIPTYLINE HYDROCHLORIDE
     Dosage: 3 DOSAGE FORM, HS, (AT NIGHT)
     Route: 065
     Dates: start: 20210805
  3. AMOXICILLIN [Concomitant]
     Active Substance: AMOXICILLIN
     Indication: Chronic obstructive pulmonary disease
     Dosage: 1 DOSAGE FORM, TID
     Route: 065
     Dates: start: 20220425, end: 20220430
  4. UMECLIDINIUM BROMIDE\VILANTEROL TRIFENATATE [Concomitant]
     Active Substance: UMECLIDINIUM BROMIDE\VILANTEROL TRIFENATATE
     Dosage: UNK, (AMBER 3)  (UMECLIDINIUM 65 MICROGRAMS AND  VIL...
     Route: 065
     Dates: start: 20210917, end: 20220425
  5. BUTYLSCOPOLAMINE BROMIDE [Concomitant]
     Active Substance: BUTYLSCOPOLAMINE BROMIDE
     Dosage: UNK UNK, QID, (TAKE UP TO TWO 4 TIMES/DAY)
     Route: 065
     Dates: start: 20210805
  6. CLARITHROMYCIN [Concomitant]
     Active Substance: CLARITHROMYCIN
     Indication: Cellulitis
     Dosage: 1 DOSAGE FORM, BID
     Route: 065
     Dates: start: 20220606, end: 20220613
  7. COCODAMOL [Concomitant]
     Active Substance: ACETAMINOPHEN\CODEINE PHOSPHATE
     Dosage: UNK UNK, QID, (TAKE 1 OR 2 4 TIMES/DAY)
     Route: 065
     Dates: start: 20220302
  8. ESTRIOL [Concomitant]
     Active Substance: ESTRIOL
     Indication: Vulval disorder
     Dosage: UNK UNK, HS, (USE EVERY NIGHT TO VULVA FOR A MONTH THEN REDUC)
     Route: 065
     Dates: start: 20210908
  9. FOLIC ACID [Concomitant]
     Active Substance: FOLIC ACID
     Dosage: 1 DOSAGE FORM, QD, (TAKE ONE TABLET ONCE A DAY FOR THREE MONTHS)
     Route: 065
     Dates: start: 20220429, end: 20220527
  10. LANSOPRAZOLE [Concomitant]
     Active Substance: LANSOPRAZOLE
     Indication: Abdominal discomfort
     Dosage: 1 DOSAGE FORM, QD, (TAKE ONE CAPSULE ONCE A DAY TO PROTECT THE STOMACH)
     Route: 065
     Dates: start: 20220616
  11. MEBEVERINE HYDROCHLORIDE [Concomitant]
     Active Substance: MEBEVERINE HYDROCHLORIDE
     Dosage: 1 DOSAGE FORM, TID
     Route: 065
     Dates: start: 20210805
  12. NAPROXEN [Concomitant]
     Active Substance: NAPROXEN
     Dosage: 1 DOSAGE FORM, BID
     Route: 065
     Dates: start: 20220616
  13. PREDNISOLONE [Concomitant]
     Active Substance: PREDNISOLONE
     Indication: Chronic obstructive pulmonary disease
     Dosage: 6 DOSAGE FORM, AM, (RESCUE COURSE FOR COPD TAKE SIX TABLETS IN THE MORNING FOR FIVE DAYS)
     Route: 065
     Dates: start: 20220425, end: 20220430
  14. ALBUTEROL [Concomitant]
     Active Substance: ALBUTEROL
     Dosage: UNK UNK, PRN, (ONE OR TWO PUFFS TO BE INHALED WHEN NEEDED FO)
     Route: 065
     Dates: start: 20210805
  15. BECLOMETHASONE DIPROPIONATE\FORMOTEROL FUMARATE\GLYCOPYRROLATE [Concomitant]
     Active Substance: BECLOMETHASONE DIPROPIONATE\FORMOTEROL FUMARATE\GLYCOPYRROLATE
     Indication: Chronic obstructive pulmonary disease
     Dosage: UNK, ((AMBER 3 COPD) (DRY POWDER INHALER) (BECLOMETA)
     Route: 065
     Dates: start: 20220425
  16. ZOPICLONE [Concomitant]
     Active Substance: ZOPICLONE
     Dosage: 1 DOSAGE FORM, HS (TAKE ONE TABLET AT NIGHT WHEN NEEDED TO AID SLE)
     Route: 065
     Dates: start: 20220505, end: 20220512

REACTIONS (2)
  - Mouth ulceration [Recovering/Resolving]
  - Gingival swelling [Recovering/Resolving]

NARRATIVE: CASE EVENT DATE: 20220622
